FAERS Safety Report 12906057 (Version 1)
Quarter: 2016Q4

REPORT INFORMATION
  Report Type: Spontaneous
  Country: US (occurrence: US)
  Receive Date: 20161101
  Receipt Date: 20161101
  Transmission Date: 20170207
  Serious: Yes (Hospitalization)
  Sender: FDA-Public Use
  Company Number: None

PATIENT
  Age: 72 Year
  Sex: Female

DRUGS (5)
  1. IBRANCE [Suspect]
     Active Substance: PALBOCICLIB
     Indication: BREAST CANCER
     Route: 048
     Dates: start: 20150930
  2. TRAMADOL. [Concomitant]
     Active Substance: TRAMADOL
  3. MUPIROCIN. [Concomitant]
     Active Substance: MUPIROCIN
  4. TIZANDINE [Concomitant]
     Active Substance: TIZANIDINE
  5. LETROZOLE 2.5MG SUN PHARMACEUTICALS [Suspect]
     Active Substance: LETROZOLE
     Indication: BREAST CANCER
     Route: 048
     Dates: start: 20151029

REACTIONS (1)
  - Hospitalisation [None]

NARRATIVE: CASE EVENT DATE: 201610
